FAERS Safety Report 7557096-8 (Version None)
Quarter: 2011Q2

REPORT INFORMATION
  Report Type: 
  Country: None (occurrence: None)
  Receive Date: 20110620
  Receipt Date: 20110616
  Transmission Date: 20111010
  Serious: Yes (Other)
  Sender: FDA-Public Use
  Company Number: US-PFIZER INC-2011133313

PATIENT
  Sex: Male

DRUGS (1)
  1. IBUPROFEN (ADVIL) [Suspect]
     Indication: MYALGIA
     Dosage: 400 MG, UNK
     Route: 048
     Dates: start: 20110616

REACTIONS (7)
  - ABDOMINAL DISCOMFORT [None]
  - HYPERSENSITIVITY [None]
  - SNEEZING [None]
  - LACRIMATION INCREASED [None]
  - SINUS DISORDER [None]
  - ERUCTATION [None]
  - ERYTHEMA [None]
